FAERS Safety Report 13850245 (Version 2)
Quarter: 2018Q1

REPORT INFORMATION
  Report Type: Report from Study
  Country: None (occurrence: US)
  Receive Date: 20170809
  Receipt Date: 20180208
  Transmission Date: 20180508
  Serious: Yes (Hospitalization)
  Sender: FDA-Public Use
  Company Number: US-ABBVIE-17K-163-2057089-00

PATIENT
  Sex: Male

DRUGS (4)
  1. HUMIRA [Suspect]
     Active Substance: ADALIMUMAB
     Route: 058
     Dates: start: 20180106, end: 20180106
  2. HUMIRA [Suspect]
     Active Substance: ADALIMUMAB
     Route: 058
     Dates: start: 20171223, end: 20171223
  3. HUMIRA [Suspect]
     Active Substance: ADALIMUMAB
     Indication: CROHN^S DISEASE
     Route: 058
     Dates: start: 20170726, end: 20170726
  4. HUMIRA [Suspect]
     Active Substance: ADALIMUMAB
     Route: 058
     Dates: start: 20180120

REACTIONS (10)
  - Drug ineffective [Not Recovered/Not Resolved]
  - Injection site bruising [Recovering/Resolving]
  - Dermatitis acneiform [Not Recovered/Not Resolved]
  - Staphylococcal infection [Unknown]
  - Rash pruritic [Not Recovered/Not Resolved]
  - Abdominal discomfort [Recovered/Resolved]
  - Intestinal stenosis [Unknown]
  - Gastritis [Recovering/Resolving]
  - Folliculitis [Not Recovered/Not Resolved]
  - Injection site discolouration [Recovering/Resolving]

NARRATIVE: CASE EVENT DATE: 2017
